FAERS Safety Report 24779937 (Version 1)
Quarter: 2024Q4

REPORT INFORMATION
  Report Type: Spontaneous
  Country: GB (occurrence: GB)
  Receive Date: 20241226
  Receipt Date: 20241226
  Transmission Date: 20250114
  Serious: Yes (Other)
  Sender: TEVA
  Company Number: None

PATIENT
  Age: 59 Year
  Sex: Male

DRUGS (8)
  1. NAPROXEN [Suspect]
     Active Substance: NAPROXEN
     Indication: Product used for unknown indication
     Dosage: ONE TO BE TAKEN TWICE A DAY WHEN REQUIRED 56 TABLET-TAKING PRE ADMISSION (LIKELY CAUSED GI BLEED)
     Route: 065
     Dates: start: 20240717
  2. LANSOPRAZOLE [Concomitant]
     Active Substance: LANSOPRAZOLE
     Indication: Product used for unknown indication
     Dosage: ONE TO BE TAKEN EACH MORNING ON THE DAYS TAKING NAPROXEN 28 CAPSULE
     Route: 065
     Dates: start: 20240814
  3. PERINDOPRIL ERBUMINE [Concomitant]
     Active Substance: PERINDOPRIL ERBUMINE
     Indication: Product used for unknown indication
     Dosage: ONE TO BE TAKEN EACH MORNING BEFORE FOOD
     Route: 065
     Dates: start: 20240917
  4. ZOPICLONE [Concomitant]
     Active Substance: ZOPICLONE
     Indication: Product used for unknown indication
     Dosage: ONE TO BE TAKEN AT NIGHT WHEN REQUIRED 5 TABLET- TAKES? AS NEEDED (HAS ONLY TAKEN 2)
     Route: 065
     Dates: start: 20240827
  5. ALLOPURINOL [Concomitant]
     Active Substance: ALLOPURINOL
     Indication: Product used for unknown indication
     Dosage: ONE TO BE TAKEN EACH DAY AFTER FOOD
     Route: 065
     Dates: start: 20240917
  6. ATORVASTATIN [Concomitant]
     Active Substance: ATORVASTATIN
     Indication: Product used for unknown indication
     Dosage: ONE TO BE TAKEN EACH DAY- HADN^T STARTED YET
     Route: 065
     Dates: start: 20240924
  7. PREGABALIN [Concomitant]
     Active Substance: PREGABALIN
     Indication: Product used for unknown indication
     Dosage: ONE TO BE TAKEN IN THE MORNING- TAKES  AS NEEDED
     Route: 065
     Dates: start: 20240917
  8. AMLODIPINE [Concomitant]
     Active Substance: AMLODIPINE BESYLATE
     Indication: Product used for unknown indication
     Dosage: ONE TO BE TAKEN EACH DAY
     Route: 065
     Dates: start: 20240917

REACTIONS (1)
  - Upper gastrointestinal haemorrhage [Unknown]
